FAERS Safety Report 20645912 (Version 2)
Quarter: 2022Q1

REPORT INFORMATION
  Report Type: Report from Study
  Country: KW (occurrence: KW)
  Receive Date: 20220329
  Receipt Date: 20220329
  Transmission Date: 20220423
  Serious: Yes (Hospitalization)
  Sender: FDA-Public Use
  Company Number: KW-ABBVIE-22K-091-4332845-00

PATIENT
  Age: 52 Year
  Sex: Female

DRUGS (1)
  1. RINVOQ [Suspect]
     Active Substance: UPADACITINIB
     Indication: Rheumatoid arthritis
     Route: 048
     Dates: start: 20210217, end: 2022

REACTIONS (5)
  - Ankle fracture [Recovered/Resolved]
  - Fall [Unknown]
  - Peripheral swelling [Not Recovered/Not Resolved]
  - Pain [Recovering/Resolving]
  - Weight bearing difficulty [Unknown]

NARRATIVE: CASE EVENT DATE: 20220225
